FAERS Safety Report 9492316 (Version 2)
Quarter: 2013Q3

REPORT INFORMATION
  Report Type: Report from Study
  Country: US (occurrence: US)
  Receive Date: 20130830
  Receipt Date: 20130912
  Transmission Date: 20140515
  Serious: Yes (Death)
  Sender: FDA-Public Use
  Company Number: GXBR2013US001606

PATIENT
  Sex: Female
  Weight: 58.5 kg

DRUGS (2)
  1. ENOXAPARIN SODIUM [Suspect]
     Dosage: 60 MG, BID
     Route: 058
     Dates: end: 20130625
  2. LOVENOX [Suspect]
     Dosage: UNK MG, UNK
     Dates: start: 20121201

REACTIONS (2)
  - Pancreatic carcinoma [Fatal]
  - Malignant neoplasm progression [Fatal]
